FAERS Safety Report 6212098-9 (Version None)
Quarter: 2009Q2

REPORT INFORMATION
  Report Type: 
  Country: None (occurrence: None)
  Receive Date: 20090602
  Receipt Date: 20090601
  Transmission Date: 20091009
  Serious: Yes (Other)
  Sender: FDA-Public Use
  Company Number: US-PFIZER INC-2009200586

PATIENT
  Sex: Female
  Weight: 92.517 kg

DRUGS (2)
  1. LYRICA [Suspect]
     Indication: FIBROMYALGIA
     Dosage: 75 MG, 1X/DAY
     Dates: start: 20071001, end: 20080101
  2. LASIX [Concomitant]
     Dosage: UNK

REACTIONS (5)
  - DRUG INEFFECTIVE [None]
  - EYELID OEDEMA [None]
  - OEDEMA PERIPHERAL [None]
  - PAIN [None]
  - VISION BLURRED [None]
